FAERS Safety Report 9469688 (Version 1)
Quarter: 2013Q3

REPORT INFORMATION
  Report Type: Spontaneous
  Country: TW (occurrence: TW)
  Receive Date: 20130822
  Receipt Date: 20130822
  Transmission Date: 20140515
  Serious: Yes (Other)
  Sender: FDA-Public Use
  Company Number: PHHY2013TW086838

PATIENT
  Age: 61 Year
  Sex: Female

DRUGS (2)
  1. IMATINIB [Suspect]
     Indication: GASTROINTESTINAL STROMAL TUMOUR
     Dosage: 400 MG, DAILY
     Dates: start: 201101
  2. IMATINIB [Suspect]
     Dosage: 400 MG PER DAY

REACTIONS (6)
  - Osteonecrosis [Not Recovered/Not Resolved]
  - Bone pain [Not Recovered/Not Resolved]
  - Gait disturbance [Unknown]
  - Joint range of motion decreased [Unknown]
  - Bone infarction [Unknown]
  - Therapeutic response decreased [Unknown]
